FAERS Safety Report 6174021-5 (Version None)
Quarter: 2009Q2

REPORT INFORMATION
  Report Type: 
  Country: None (occurrence: None)
  Receive Date: 20090430
  Receipt Date: 20080114
  Transmission Date: 20091009
  Serious: No
  Sender: FDA-Public Use
  Company Number: US-ASTRAZENECA-2008UW00969

PATIENT
  Age: 51 Year
  Sex: Male

DRUGS (7)
  1. NEXIUM [Suspect]
     Indication: GASTROOESOPHAGEAL REFLUX DISEASE
     Route: 048
     Dates: start: 20071101
  2. LEVOTHYROXINE SODIUM [Concomitant]
  3. CLONIDINE [Concomitant]
  4. LASIX [Concomitant]
     Dosage: PRN
  5. LANTUS [Concomitant]
  6. POTASSIUM CHLORIDE [Concomitant]
  7. COZAAR [Concomitant]

REACTIONS (2)
  - BLOOD GLUCOSE INCREASED [None]
  - VOMITING [None]
